FAERS Safety Report 7287384-4 (Version None)
Quarter: 2011Q1

REPORT INFORMATION
  Report Type: 
  Country: None (occurrence: None)
  Receive Date: 20110211
  Receipt Date: 20110203
  Transmission Date: 20110831
  Serious: Yes (Other)
  Sender: FDA-Public Use
  Company Number: US-US-EMD SERONO, INC.-7040378

PATIENT
  Sex: Female

DRUGS (1)
  1. REBIF [Suspect]
     Indication: RELAPSING-REMITTING MULTIPLE SCLEROSIS
     Route: 058
     Dates: start: 20101103

REACTIONS (4)
  - PAIN IN EXTREMITY [None]
  - INJECTION SITE PAIN [None]
  - BLADDER OPERATION [None]
  - INJECTION SITE HAEMATOMA [None]
